FAERS Safety Report 7234873-4 (Version None)
Quarter: 2011Q1

REPORT INFORMATION
  Report Type: 
  Country: None (occurrence: None)
  Receive Date: 20110120
  Receipt Date: 20110114
  Transmission Date: 20110831
  Serious: Yes (Hospitalization)
  Sender: FDA-Public Use
  Company Number: US-PFIZER INC-2011010191

PATIENT
  Sex: Male
  Weight: 124 kg

DRUGS (1)
  1. TORISEL [Suspect]
     Indication: RENAL CANCER METASTATIC
     Dosage: 25 MG, UNK
     Route: 042
     Dates: start: 20101220

REACTIONS (4)
  - RENAL CELL CARCINOMA [None]
  - THROMBOSIS [None]
  - ANAEMIA [None]
  - DISEASE PROGRESSION [None]
